FAERS Safety Report 4534630-3 (Version None)
Quarter: 2004Q4

REPORT INFORMATION
  Report Type: 
  Country: None (occurrence: None)
  Receive Date: 20041222
  Receipt Date: 20041209
  Transmission Date: 20050328
  Serious: Yes (Hospitalization)
  Sender: FDA-Public Use
  Company Number: ES-JNJFOC-20041004741

PATIENT
  Age: 54 Year
  Sex: Female

DRUGS (5)
  1. REMICADE [Suspect]
     Indication: RELAPSING POLYCHONDRITIS
     Route: 042
  2. PREDNISONE [Suspect]
     Indication: RELAPSING POLYCHONDRITIS
  3. METHOTREXATE [Concomitant]
     Indication: RELAPSING POLYCHONDRITIS
     Dosage: 10MG - 15MG WEEKLY
  4. CYCLOSPORINE [Concomitant]
     Indication: RELAPSING POLYCHONDRITIS
     Dosage: 12.5MG - 100MG/12 HRS
  5. ISONIAZID [Concomitant]
     Indication: TUBERCULOSIS PROPHYLAXIS

REACTIONS (11)
  - ANAEMIA OF CHRONIC DISEASE [None]
  - BRONCHOPULMONARY ASPERGILLOSIS [None]
  - CONJUNCTIVITIS VIRAL [None]
  - DIABETES MELLITUS [None]
  - HEPATOTOXICITY [None]
  - HERPES ZOSTER [None]
  - HYPOALBUMINAEMIA [None]
  - MYOPATHY STEROID [None]
  - RENAL FAILURE ACUTE [None]
  - RESPIRATORY TRACT INFECTION [None]
  - URINARY TRACT INFECTION [None]
